FAERS Safety Report 9343125 (Version 2)
Quarter: 2013Q3

REPORT INFORMATION
  Report Type: Spontaneous
  Country: IT (occurrence: IT)
  Receive Date: 20130611
  Receipt Date: 20130826
  Transmission Date: 20140515
  Serious: Yes (Other)
  Sender: FDA-Public Use
  Company Number: IT-MYLANLABS-2013S1011795

PATIENT
  Age: 43 Year
  Sex: Male

DRUGS (1)
  1. RISPERIDONE [Suspect]
     Indication: MANIA
     Route: 048
     Dates: start: 20110318, end: 20120517

REACTIONS (1)
  - Psychotic behaviour [Recovered/Resolved]
